FAERS Safety Report 6744990-0 (Version None)
Quarter: 2010Q2

REPORT INFORMATION
  Report Type: 
  Country: None (occurrence: None)
  Receive Date: 20100527
  Receipt Date: 20100518
  Transmission Date: 20101027
  Serious: Yes (Hospitalization, Other)
  Sender: FDA-Public Use
  Company Number: CH-ABBOTT-10P-151-0645718-00

PATIENT
  Age: 62 Year
  Sex: Male

DRUGS (2)
  1. CLARITHROMYCIN [Suspect]
     Indication: RESPIRATORY TRACT INFECTION
     Route: 048
     Dates: start: 20100302, end: 20100311
  2. MARCUMAR [Interacting]
     Indication: HEART VALVE REPLACEMENT
     Route: 048
     Dates: start: 20060101, end: 20100311

REACTIONS (10)
  - ABDOMINAL PAIN UPPER [None]
  - ASTHENIA [None]
  - DRUG INTERACTION [None]
  - GASTRIC CANCER [None]
  - GASTRIC HAEMORRHAGE [None]
  - GASTRIC ULCER [None]
  - HAEMORRHAGIC ANAEMIA [None]
  - MELAENA [None]
  - PRESYNCOPE [None]
  - PROTHROMBIN TIME ABNORMAL [None]
